FAERS Safety Report 8109534-X (Version None)
Quarter: 2012Q1

REPORT INFORMATION
  Report Type: 
  Country: None (occurrence: None)
  Receive Date: 20120202
  Receipt Date: 20120113
  Transmission Date: 20120608
  Serious: No
  Sender: FDA-Public Use
  Company Number: US-AMGEN-USASP2012002558

PATIENT
  Age: 46 Year
  Sex: Female
  Weight: 68.027 kg

DRUGS (8)
  1. LOTENSIN HCT [Concomitant]
     Dosage: UNK
     Route: 048
  2. LIVALO [Concomitant]
     Dosage: 1 MG, UNK
     Route: 048
  3. VITAMIN D [Concomitant]
     Dosage: 1000 IU, UNK
     Route: 048
  4. LOESTRIN FE 1/20 [Concomitant]
     Dosage: UNK
     Route: 048
  5. METHOTREXATE [Concomitant]
     Dosage: 2.5 MG, UNK
     Route: 048
  6. ENBREL [Suspect]
     Indication: PRODUCT USED FOR UNKNOWN INDICATION
     Dosage: 50 MG, QWK
     Route: 058
  7. NEURONTIN [Concomitant]
     Dosage: 300 MG, UNK
     Route: 048
  8. TRAMADOL HCL [Concomitant]
     Dosage: 50 MG, UNK
     Route: 048

REACTIONS (1)
  - NASOPHARYNGITIS [None]
